FAERS Safety Report 8921014 (Version 1)
Quarter: 2012Q4

REPORT INFORMATION
  Report Type: 
  Country: US (occurrence: US)
  Receive Date: 20121121
  Receipt Date: 20121121
  Transmission Date: 20130627
  Serious: Yes (Hospitalization)
  Sender: FDA-Public Use
  Company Number: US-ELI_LILLY_AND_COMPANY-US201211003817

PATIENT
  Age: 27 Year
  Sex: Male

DRUGS (3)
  1. CYMBALTA [Suspect]
     Indication: BACK PAIN
     Dosage: 30 mg, qd
     Dates: start: 20120907, end: 20121007
  2. CYMBALTA [Suspect]
     Dosage: 60 mg, UNK
     Dates: start: 20121008, end: 20121011
  3. RISPERIDONE [Concomitant]

REACTIONS (5)
  - Self injurious behaviour [Unknown]
  - Hallucination [Unknown]
  - Drug withdrawal syndrome [Unknown]
  - Feeling abnormal [Unknown]
  - Intentional drug misuse [Unknown]
